FAERS Safety Report 9778449 (Version 1)
Quarter: 2013Q4

REPORT INFORMATION
  Report Type: Spontaneous
  Country: US (occurrence: US)
  Receive Date: 20131223
  Receipt Date: 20131223
  Transmission Date: 20140711
  Serious: Yes (Other)
  Sender: FDA-Public Use
  Company Number: US-RB-061266-13

PATIENT
  Age: 83 Year
  Sex: Female

DRUGS (1)
  1. MUCINEX DM MAXIMUM STRENGTH [Suspect]
     Indication: PRODUCT USED FOR UNKNOWN INDICATION
     Route: 048
     Dates: start: 20131211

REACTIONS (5)
  - Memory impairment [Recovered/Resolved]
  - Disorientation [Recovered/Resolved]
  - Impaired driving ability [Recovered/Resolved]
  - Expired drug administered [Recovered/Resolved]
  - Confusional state [Recovered/Resolved]
